FAERS Safety Report 4507298-X (Version None)
Quarter: 2004Q4

REPORT INFORMATION
  Report Type: 
  Country: None (occurrence: None)
  Receive Date: 20041025
  Receipt Date: 20040204
  Transmission Date: 20050328
  Serious: Yes (Hospitalization)
  Sender: FDA-Public Use
  Company Number: US-JNJFOC-20030602123

PATIENT
  Age: 36 Year
  Sex: Male
  Weight: 113.3993 kg

DRUGS (7)
  1. REMICADE [Suspect]
     Indication: COLITIS ULCERATIVE
     Dosage: , 1 IN 1 DAY, INTRAVENOUS; 500 MG, 1 IN 6 WEEK, INTRAVENOUS
     Route: 042
     Dates: start: 20030411
  2. REMICADE [Suspect]
     Indication: CROHN'S DISEASE
     Dosage: , 1 IN 1 DAY, INTRAVENOUS; 500 MG, 1 IN 6 WEEK, INTRAVENOUS
     Route: 042
     Dates: start: 20030411
  3. REMICADE [Suspect]
     Indication: RHEUMATOID ARTHRITIS
     Dosage: , 1 IN 1 DAY, INTRAVENOUS; 500 MG, 1 IN 6 WEEK, INTRAVENOUS
     Route: 042
     Dates: start: 20030411
  4. CELEBREX [Concomitant]
  5. DARVOCET [Concomitant]
  6. VICODIN [Concomitant]
  7. ALOPURINOL (ALLOPURINOL) [Concomitant]

REACTIONS (2)
  - PANCREATITIS [None]
  - UNEXPECTED THERAPEUTIC DRUG EFFECT [None]
